FAERS Safety Report 16950263 (Version 1)
Quarter: 2019Q4

REPORT INFORMATION
  Report Type: Spontaneous
  Country: US (occurrence: US)
  Receive Date: 20191023
  Receipt Date: 20191023
  Transmission Date: 20200122
  Serious: No
  Sender: FDA-Public Use
  Company Number: US-PFIZER INC-2019454251

PATIENT
  Sex: Female

DRUGS (1)
  1. XANAX [Suspect]
     Active Substance: ALPRAZOLAM
     Indication: INSOMNIA
     Dosage: 0.75 MG, UNK ( TOOK 3 (0.25 MG TABLETS) LAST NIGHT)

REACTIONS (3)
  - Product use in unapproved indication [Unknown]
  - Mental disorder [Unknown]
  - Off label use [Unknown]
